FAERS Safety Report 6888748-0 (Version None)
Quarter: 2010Q3

REPORT INFORMATION
  Report Type: 
  Country: None (occurrence: None)
  Receive Date: 20100730
  Receipt Date: 20071025
  Transmission Date: 20110219
  Serious: No
  Sender: FDA-Public Use
  Company Number: US-PFIZER INC-2007090330

PATIENT
  Sex: Male
  Weight: 75 kg

DRUGS (6)
  1. LIPITOR [Suspect]
     Indication: BLOOD CHOLESTEROL INCREASED
     Dates: start: 20011101
  2. LUNESTA [Concomitant]
  3. VITAMIN E [Concomitant]
  4. ASCORBIC ACID [Concomitant]
  5. PRAVACHOL [Concomitant]
  6. ZOCOR [Concomitant]

REACTIONS (1)
  - MUSCLE SPASMS [None]
